FAERS Safety Report 21742205 (Version 1)
Quarter: 2022Q4

REPORT INFORMATION
  Report Type: Spontaneous
  Country: JP (occurrence: JP)
  Receive Date: 20221216
  Receipt Date: 20221216
  Transmission Date: 20230112
  Serious: Yes (Hospitalization)
  Sender: FDA-Public Use
  Company Number: JP-Eisai-202211981_LEN-HCC_P_1

PATIENT
  Age: 75 Year
  Sex: Male
  Weight: 79 kg

DRUGS (2)
  1. LENVIMA [Suspect]
     Active Substance: LENVATINIB
     Indication: Hepatocellular carcinoma
     Route: 048
     Dates: start: 20221119, end: 20221129
  2. INSULIN NOS [Suspect]
     Active Substance: INSULIN NOS
     Indication: Diabetes mellitus
     Dosage: DOSE AND FREQUENCY UNKNOWN
     Route: 041
     Dates: start: 20221119

REACTIONS (5)
  - Renal failure [Unknown]
  - Hepatic encephalopathy [Recovering/Resolving]
  - Jaundice [Recovering/Resolving]
  - Malaise [Recovering/Resolving]
  - Decreased appetite [Recovering/Resolving]

NARRATIVE: CASE EVENT DATE: 20221101
